FAERS Safety Report 8558720-3 (Version None)
Quarter: 2012Q3

REPORT INFORMATION
  Report Type: 
  Country: None (occurrence: None)
  Receive Date: 20120801
  Receipt Date: 20120801
  Transmission Date: 20120928
  Serious: Yes (Death)
  Sender: FDA-Public Use
  Company Number: US-FRI-1000037348

PATIENT
  Age: 22 Year
  Sex: Male

DRUGS (1)
  1. BYSTOLIC [Suspect]
     Indication: SUPRAVENTRICULAR TACHYCARDIA
     Dosage: 10 MG
     Route: 048
     Dates: start: 20120401

REACTIONS (1)
  - COMPLETED SUICIDE [None]
